FAERS Safety Report 5490911-0 (Version None)
Quarter: 2007Q4

REPORT INFORMATION
  Report Type: 
  Country: None (occurrence: None)
  Receive Date: 20071019
  Receipt Date: 20071016
  Transmission Date: 20080405
  Serious: Yes (Hospitalization, Other)
  Sender: FDA-Public Use
  Company Number: AU-AVENTIS-200718053GDDC

PATIENT
  Age: 45 Year
  Sex: Female

DRUGS (3)
  1. LANTUS [Suspect]
     Route: 058
     Dates: start: 20050507
  2. AUTOPEN INSULIN INJECTION PEN [Suspect]
     Route: 058
  3. ACTRAPID [Concomitant]
     Dosage: DOSE: 4-6
     Route: 058

REACTIONS (3)
  - BLOOD GLUCOSE FLUCTUATION [None]
  - HYPOGLYCAEMIC UNCONSCIOUSNESS [None]
  - VOMITING [None]
